FAERS Safety Report 6481761-7 (Version None)
Quarter: 2009Q4

REPORT INFORMATION
  Report Type: 
  Country: None (occurrence: None)
  Receive Date: 20091208
  Receipt Date: 20090325
  Transmission Date: 20100525
  Serious: No
  Sender: FDA-Public Use
  Company Number: US-AMGEN-KDL340159

PATIENT
  Sex: Female
  Weight: 90.8 kg

DRUGS (3)
  1. ENBREL [Suspect]
     Indication: PSORIASIS
     Route: 058
     Dates: start: 20090305
  2. SALICYLIC ACID [Concomitant]
     Dates: start: 20070220
  3. OLUX [Concomitant]
     Dates: start: 20070220

REACTIONS (2)
  - IRITIS [None]
  - PHOTOPHOBIA [None]
